FAERS Safety Report 16192271 (Version 2)
Quarter: 2019Q3

REPORT INFORMATION
  Report Type: Spontaneous
  Country: MX (occurrence: MX)
  Receive Date: 20190412
  Receipt Date: 20190806
  Transmission Date: 20191004
  Serious: Yes (Hospitalization)
  Sender: FDA-Public Use
  Company Number: MX-ASTRAZENECA-2019SE55874

PATIENT
  Age: 27110 Day
  Sex: Female
  Weight: 79 kg

DRUGS (7)
  1. TENORETIC [Suspect]
     Active Substance: ATENOLOL\CHLORTHALIDONE
     Indication: HYPERTENSION
     Route: 048
     Dates: start: 20090101
  2. SUCRALFATE. [Concomitant]
     Active Substance: SUCRALFATE
     Indication: GASTRIC HAEMORRHAGE
     Route: 048
     Dates: start: 20190401
  3. PANTOPRAZOL [Concomitant]
     Active Substance: PANTOPRAZOLE SODIUM
     Indication: GASTRIC HAEMORRHAGE
     Route: 048
     Dates: start: 20190401
  4. TURMERIC CURCUMA [Concomitant]
     Indication: ARTHRITIS
     Route: 048
     Dates: start: 20190728
  5. SELOPRES ZOK [Suspect]
     Active Substance: HYDROCHLOROTHIAZIDE\METOPROLOL
     Indication: HYPERTENSION
     Route: 048
     Dates: start: 20090630
  6. ASPIRINA [Concomitant]
     Active Substance: ASPIRIN
     Indication: ARTHRITIS
     Route: 048
     Dates: start: 20190301
  7. NEXIUM [Suspect]
     Active Substance: ESOMEPRAZOLE MAGNESIUM
     Indication: GASTRIC HAEMORRHAGE
     Route: 048
     Dates: start: 20190401

REACTIONS (5)
  - Arthritis [Not Recovered/Not Resolved]
  - Fatigue [Unknown]
  - Gastric haemorrhage [Recovered/Resolved]
  - Discomfort [Unknown]
  - Blood cholesterol increased [Not Recovered/Not Resolved]

NARRATIVE: CASE EVENT DATE: 20190301
